FAERS Safety Report 12045612 (Version 2)
Quarter: 2016Q1

REPORT INFORMATION
  Report Type: Report from Study
  Country: GB (occurrence: GB)
  Receive Date: 20160208
  Receipt Date: 20160217
  Transmission Date: 20160526
  Serious: Yes (Other)
  Sender: FDA-Public Use
  Company Number: GB-JNJFOC-20160201240

PATIENT
  Sex: Female
  Weight: 140 kg

DRUGS (5)
  1. EUMOVATE [Concomitant]
     Active Substance: CLOBETASONE BUTYRATE
     Dosage: ONE APPLICATION TOPICALLY
     Route: 061
     Dates: start: 20130918
  2. DOVOBET [Concomitant]
     Active Substance: BETAMETHASONE\CALCIPOTRIENE
     Route: 061
     Dates: start: 20040423
  3. STELARA [Suspect]
     Active Substance: USTEKINUMAB
     Indication: PSORIASIS
     Dosage: 1 SYRINGE ON WEEK 0
     Route: 058
     Dates: start: 20160121
  4. DERMOL [Concomitant]
     Active Substance: BENZALKONIUM CHLORIDE\CHLORHEXIDINE HYDROCHLORIDE\ISOPROPYL MYRISTATE\PARAFFIN
     Dosage: PRN
     Route: 065
     Dates: start: 20150424
  5. DOUBLEBASE [Concomitant]
     Active Substance: ISOPROPYL MYRISTATE\PARAFFIN
     Dosage: PRN
     Route: 061
     Dates: start: 20150828

REACTIONS (2)
  - Swelling face [Unknown]
  - Lower respiratory tract infection [Unknown]
